FAERS Safety Report 4274716-4 (Version None)
Quarter: 2004Q1

REPORT INFORMATION
  Report Type: 
  Country: None (occurrence: None)
  Receive Date: 20040120
  Receipt Date: 20040120
  Transmission Date: 20041129
  Serious: Yes (Hospitalization)
  Sender: FDA-Public Use
  Company Number: None

PATIENT
  Age: 58 Year
  Sex: Male
  Weight: 92 kg

DRUGS (3)
  1. KETOROLAC [Suspect]
     Dosage: 30 MG X 1 AT 11:4 IV
     Route: 042
     Dates: start: 20030204, end: 20030204
  2. CIPROFLOXACIN [Concomitant]
  3. VICODIN [Concomitant]

REACTIONS (2)
  - PROCEDURAL HYPOTENSION [None]
  - RENAL FAILURE ACUTE [None]
